FAERS Safety Report 10067526 (Version 2)
Quarter: 2014Q2

REPORT INFORMATION
  Report Type: Report from Study
  Country: GB (occurrence: GB)
  Receive Date: 20140409
  Receipt Date: 20140409
  Transmission Date: 20141212
  Serious: Yes (Other)
  Sender: FDA-Public Use
  Company Number: GB-JNJFOC-20140303112

PATIENT
  Age: 36 Year
  Sex: Female
  Weight: 84 kg

DRUGS (8)
  1. USTEKINUMAB [Suspect]
     Indication: PSORIASIS
     Route: 058
     Dates: start: 20110530, end: 20120820
  2. DOUBLEBASE [Suspect]
     Indication: PRODUCT USED FOR UNKNOWN INDICATION
     Route: 065
     Dates: start: 20100122
  3. SERTRALINE [Suspect]
     Indication: PRODUCT USED FOR UNKNOWN INDICATION
     Route: 065
     Dates: start: 20101015
  4. XAMIOL [Suspect]
     Indication: PRODUCT USED FOR UNKNOWN INDICATION
     Route: 065
     Dates: start: 20110912
  5. DOVOBET [Suspect]
     Indication: PRODUCT USED FOR UNKNOWN INDICATION
     Route: 065
     Dates: start: 20110309, end: 20121001
  6. CYCLOSPORIN [Suspect]
     Indication: PRODUCT USED FOR UNKNOWN INDICATION
     Route: 065
     Dates: start: 20121125, end: 20121227
  7. EUMOVATE [Suspect]
     Indication: PRODUCT USED FOR UNKNOWN INDICATION
     Route: 065
     Dates: start: 20121001
  8. FOLIC ACID [Concomitant]
     Route: 065
     Dates: start: 20121001

REACTIONS (2)
  - Exposure during pregnancy [Recovered/Resolved]
  - Caesarean section [Unknown]
